FAERS Safety Report 20502228 (Version 15)
Quarter: 2022Q2

REPORT INFORMATION
  Report Type: Spontaneous
  Country: GB (occurrence: GB)
  Receive Date: 20220222
  Receipt Date: 20220614
  Transmission Date: 20220721
  Serious: Yes (Life-Threatening, Hospitalization, Disabling, Congenital Anomaly, Other)
  Sender: FDA-Public Use
  Company Number: GB-MHRA-ADR 24468850

PATIENT
  Age: 50 Year
  Sex: Female
  Weight: 60.6 kg

DRUGS (19)
  1. VENLAFAXINE [Suspect]
     Active Substance: VENLAFAXINE HYDROCHLORIDE
     Indication: Depression
     Dosage: 75 MILLIGRAM, QD (DISCONTINUED AND THEN REINTRODUCED AT REDUCED DOSE ON PSYCHIATRY ADVICE)
     Route: 048
  2. VENLAFAXINE [Suspect]
     Active Substance: VENLAFAXINE HYDROCHLORIDE
     Indication: Anxiety
     Dosage: 150 MILLIGRAM, QD (DISCONTINUED THEN REINTRODUCED AT REDUCED DOSE ON PSYCHIATRY ADVICE)
     Route: 048
     Dates: start: 2015
  3. VENLAFAXINE [Suspect]
     Active Substance: VENLAFAXINE HYDROCHLORIDE
     Dosage: 150 MILLIGRAM, QD (150 MG, QD (75 MG,2X/DAY), TABLET ) START DATE:2015
     Route: 048
  4. VENLAFAXINE [Suspect]
     Active Substance: VENLAFAXINE HYDROCHLORIDE
     Dosage: PROLONGED-RELEASE CAPSULE, EFFEXOR XL  )
     Route: 065
  5. EFFEXOR [Suspect]
     Active Substance: VENLAFAXINE HYDROCHLORIDE
     Indication: Depression
     Dosage: UNK
  6. EFFEXOR [Suspect]
     Active Substance: VENLAFAXINE HYDROCHLORIDE
     Indication: Anxiety
     Dosage: 750 MILLIGRAM, QD
  7. VENLAFAXINE HYDROCHLORIDE [Suspect]
     Active Substance: VENLAFAXINE HYDROCHLORIDE
     Indication: Depression
     Dosage: 150 MILLIGRAM, QD ((DISCONTINUED THEN REINTRODUCED AT REDUCED DOSE ON PSYCHIATRY ADVICE)
     Route: 048
     Dates: start: 2015
  8. VENLAFAXINE HYDROCHLORIDE [Suspect]
     Active Substance: VENLAFAXINE HYDROCHLORIDE
     Indication: Anxiety
     Dosage: 75 MILLIGRAM, QD (DISCONTINUED THEN REINTRODUCED AT REDUCED DOSE ON PSYCHIATRY ADVICE)
     Route: 048
  9. BALSALAZIDE [Suspect]
     Active Substance: BALSALAZIDE
     Indication: Colitis ulcerative
     Dosage: 2.25 GRAM, QD (2.25 G, 1X/DAY (3 CAPSULES ONCE DAILY))
     Route: 048
     Dates: start: 2008, end: 20200115
  10. BALSALAZIDE [Suspect]
     Active Substance: BALSALAZIDE
     Dosage: 2250 MILLIGRAM, QD (3 CAPSULES ONCE DAILY)
     Route: 048
  11. BALSALAZIDE [Suspect]
     Active Substance: BALSALAZIDE
     Dosage: UNK
  12. BALSALAZIDE DISODIUM [Suspect]
     Active Substance: BALSALAZIDE DISODIUM
     Indication: Colitis ulcerative
     Dosage: 2.25 GRAM, AM, (3 CAPSULES ONCE DAILY)
     Route: 048
     Dates: start: 2008, end: 20200115
  13. BALSALAZIDE DISODIUM [Suspect]
     Active Substance: BALSALAZIDE DISODIUM
     Dosage: 2250 MILLIGRAM, QD (3 CAPSULES ONCE DAILY)
     Route: 048
  14. BALSALAZIDE DISODIUM [Suspect]
     Active Substance: BALSALAZIDE DISODIUM
     Dosage: 750 MILLIGRAM, AM (750 MG, 3 IN THE MORNING  )
     Route: 048
     Dates: start: 2008, end: 20200115
  15. BALSALAZIDE [Suspect]
     Active Substance: BALSALAZIDE
     Indication: Colitis ulcerative
     Dosage: 750 MILLIGRAM, AM (75 MILLIGRAM (750 MG, 3 TABS IN THE MORNING))
     Route: 048
     Dates: start: 2008, end: 20200115
  16. BALSALAZIDE [Suspect]
     Active Substance: BALSALAZIDE
     Dosage: 75 MILLIGRAM, QD ((750 MG, 3 TABS IN THE MORNING)
     Route: 048
     Dates: start: 2008, end: 20200115
  17. BALSALAZIDE DISODIUM [Suspect]
     Active Substance: BALSALAZIDE DISODIUM
     Indication: Colitis ulcerative
     Dosage: 750 MILLIGRAM (750 MG, 3 TABS IN THE MORNING)
     Route: 048
     Dates: start: 2008, end: 20200115
  18. TRIMETHOPRIM [Concomitant]
     Active Substance: TRIMETHOPRIM
     Indication: Product used for unknown indication
     Dosage: UNK (3 DAY COURSE)
     Dates: start: 20191204
  19. BALSALAZIDE [Concomitant]
     Active Substance: BALSALAZIDE
     Dosage: 75 MILLIGRAM, QD
     Route: 048
     Dates: start: 2008, end: 20200115

REACTIONS (10)
  - Cardiac failure [Not Recovered/Not Resolved]
  - Left ventricular dysfunction [Not Recovered/Not Resolved]
  - Effusion [Not Recovered/Not Resolved]
  - Heart rate increased [Unknown]
  - Congestive cardiomyopathy [Not Recovered/Not Resolved]
  - Cardiomyopathy [Not Recovered/Not Resolved]
  - Chest discomfort [Unknown]
  - Dyspnoea [Unknown]
  - Nausea [Unknown]
  - Insomnia [Unknown]

NARRATIVE: CASE EVENT DATE: 20200108
